FAERS Safety Report 7755181-9 (Version None)
Quarter: 2011Q3

REPORT INFORMATION
  Report Type: 
  Country: None (occurrence: None)
  Receive Date: 20110916
  Receipt Date: 20110525
  Transmission Date: 20111222
  Serious: No
  Sender: FDA-Public Use
  Company Number: US-GLAXOSMITHKLINE-A0929131A

PATIENT
  Age: 69 Year
  Sex: Female

DRUGS (1)
  1. PROMACTA [Suspect]
     Indication: PRODUCT USED FOR UNKNOWN INDICATION
     Dosage: 50MG PER DAY
     Route: 048
     Dates: start: 20110329

REACTIONS (8)
  - INSOMNIA [None]
  - NASOPHARYNGITIS [None]
  - EPISTAXIS [None]
  - PYREXIA [None]
  - VOMITING [None]
  - DIARRHOEA [None]
  - COUGH [None]
  - INFLUENZA LIKE ILLNESS [None]
